FAERS Safety Report 10157868 (Version 6)
Quarter: 2014Q4

REPORT INFORMATION
  Report Type: Report from Study
  Country: CA (occurrence: CA)
  Receive Date: 20140507
  Receipt Date: 20141010
  Transmission Date: 20150528
  Serious: Yes (Hospitalization)
  Sender: FDA-Public Use
  Company Number: PHHY2014CA054439

PATIENT
  Age: 74 Year
  Sex: Female

DRUGS (1)
  1. SANDOSTATIN LAR DEPOT [Suspect]
     Active Substance: OCTREOTIDE ACETATE
     Indication: PRODUCT USED FOR UNKNOWN INDICATION
     Dosage: 30 MG,  EVERY 4 WEEKS
     Route: 030
     Dates: start: 20140402

REACTIONS (8)
  - Peripheral swelling [Unknown]
  - Blood pressure increased [Unknown]
  - Disorientation [Unknown]
  - Abdominal pain [Unknown]
  - Burning sensation [Unknown]
  - Sedation [Unknown]
  - Brain neoplasm [Unknown]
  - Delusion [Unknown]

NARRATIVE: CASE EVENT DATE: 2014
